FAERS Safety Report 4760022-8 (Version None)
Quarter: 2005Q3

REPORT INFORMATION
  Report Type: 
  Country: None (occurrence: None)
  Receive Date: 20050902
  Receipt Date: 20050826
  Transmission Date: 20060218
  Serious: Yes (Other)
  Sender: FDA-Public Use
  Company Number: PHFR2005GB02892

PATIENT
  Age: 25 Year
  Sex: Male

DRUGS (1)
  1. DESFERAL [Suspect]
     Indication: BLOOD IRON ABNORMAL
     Dosage: UNK, UNK
     Route: 065

REACTIONS (1)
  - EJECTION FRACTION DECREASED [None]
